FAERS Safety Report 6330290-X (Version None)
Quarter: 2009Q3

REPORT INFORMATION
  Report Type: 
  Country: None (occurrence: None)
  Receive Date: 20090827
  Receipt Date: 20090629
  Transmission Date: 20100115
  Serious: No
  Sender: FDA-Public Use
  Company Number: US-KINGPHARMUSA00001-K200900774

PATIENT
  Age: 65 Year
  Sex: Female
  Weight: 68.027 kg

DRUGS (1)
  1. FLECTOR [Suspect]
     Indication: PAIN IN EXTREMITY
     Dosage: ONE FIFTH OF A PATCH, SINGLE
     Route: 061
     Dates: start: 20090625, end: 20090625

REACTIONS (3)
  - EYE SWELLING [None]
  - RASH GENERALISED [None]
  - URTICARIA [None]
